FAERS Safety Report 9736709 (Version 2)
Quarter: 2015Q3

REPORT INFORMATION
  Report Type: Spontaneous
  Country: US (occurrence: US)
  Receive Date: 20131206
  Receipt Date: 20150804
  Transmission Date: 20151125
  Serious: No
  Sender: FDA-Public Use
  Company Number: US-GILEAD-2009-0023643

PATIENT
  Age: 66 Year
  Sex: Female
  Weight: 88.45 kg

DRUGS (11)
  1. LOPRESSOR [Concomitant]
     Active Substance: METOPROLOL TARTRATE
  2. ENALAPRIL [Concomitant]
     Active Substance: ENALAPRIL
  3. ALBUTEROL. [Concomitant]
     Active Substance: ALBUTEROL
  4. ASPIRIN. [Concomitant]
     Active Substance: ASPIRIN
  5. LETAIRIS [Suspect]
     Active Substance: AMBRISENTAN
     Indication: PULMONARY ARTERIAL HYPERTENSION
     Route: 048
     Dates: start: 20090720
  6. LASIX [Concomitant]
     Active Substance: FUROSEMIDE
  7. IPRATROPIUM BR [Concomitant]
  8. DIGOXIN. [Concomitant]
     Active Substance: DIGOXIN
  9. ADVAIR HFA [Concomitant]
     Active Substance: FLUTICASONE PROPIONATE\SALMETEROL XINAFOATE
  10. COUMADIN [Concomitant]
     Active Substance: WARFARIN SODIUM
  11. MAXAIR [Concomitant]
     Active Substance: PIRBUTEROL ACETATE

REACTIONS (2)
  - Oedema peripheral [Unknown]
  - Abdominal discomfort [Unknown]
